FAERS Safety Report 8925059 (Version 1)
Quarter: 2012Q4

REPORT INFORMATION
  Report Type: Spontaneous
  Country: CA (occurrence: None)
  Receive Date: 20121116
  Receipt Date: 20121116
  Transmission Date: 20130627
  Serious: Yes (Hospitalization)
  Sender: FDA-Public Use
  Company Number: NSR_00713_2012

PATIENT
  Sex: Female

DRUGS (1)
  1. BACLOFEN [Suspect]
     Indication: PRODUCT USED FOR UNKNOWN INDICATION
     Dosage: (DF [Not the prescribed dose])

REACTIONS (4)
  - Coma scale abnormal [None]
  - Overdose [None]
  - Atrioventricular block first degree [None]
  - Blood pressure decreased [None]
